FAERS Safety Report 7207214-6 (Version None)
Quarter: 2011Q1

REPORT INFORMATION
  Report Type: 
  Country: None (occurrence: None)
  Receive Date: 20110103
  Receipt Date: 20101224
  Transmission Date: 20110831
  Serious: Yes (Hospitalization)
  Sender: FDA-Public Use
  Company Number: JP-ASTRAZENECA-2010SE58673

PATIENT
  Age: 28022 Day
  Sex: Female
  Weight: 53 kg

DRUGS (13)
  1. ASPIRIN [Concomitant]
     Indication: MYOCARDIAL INFARCTION
     Route: 048
     Dates: start: 20101007
  2. PANALDINE [Suspect]
     Indication: CORONARY ANGIOPLASTY
     Route: 048
     Dates: start: 20100925, end: 20101029
  3. MUCOSTA [Suspect]
     Indication: REFLUX OESOPHAGITIS
     Route: 048
     Dates: start: 20100930, end: 20101111
  4. LANTUS [Concomitant]
     Indication: DIABETES MELLITUS
     Dosage: DAILY
     Route: 058
     Dates: start: 20101005
  5. CRESTOR [Suspect]
     Indication: DYSLIPIDAEMIA
     Route: 048
     Dates: start: 20100101
  6. FLUITRAN [Concomitant]
     Indication: CARDIAC FAILURE
     Dosage: DAILY
     Route: 048
     Dates: start: 20101020, end: 20101208
  7. PARIET [Suspect]
     Indication: REFLUX OESOPHAGITIS
     Route: 048
     Dates: start: 20100930, end: 20101105
  8. HERBESSER [Concomitant]
     Indication: MYOCARDIAL INFARCTION
     Route: 048
     Dates: start: 20100928, end: 20101208
  9. FRANDOL S [Concomitant]
     Indication: MYOCARDIAL INFARCTION
     Route: 062
     Dates: start: 20100928
  10. ARTIST [Concomitant]
     Indication: MYOCARDIAL ISCHAEMIA
     Dosage: DAILY
     Route: 048
     Dates: start: 20100930, end: 20101208
  11. LASIX [Suspect]
     Indication: CARDIAC FAILURE
     Route: 048
     Dates: start: 20101007, end: 20101019
  12. DIART [Concomitant]
     Indication: CARDIAC FAILURE
     Route: 048
     Dates: start: 20100930, end: 20101208
  13. SIGMART [Concomitant]
     Indication: MYOCARDIAL INFARCTION
     Route: 048
     Dates: start: 20100928, end: 20101208

REACTIONS (1)
  - GRANULOCYTE COUNT DECREASED [None]
